FAERS Safety Report 23229273 (Version 2)
Quarter: 2023Q4

REPORT INFORMATION
  Report Type: Spontaneous
  Country: GB (occurrence: None)
  Receive Date: 20231127
  Receipt Date: 20231206
  Transmission Date: 20240110
  Serious: Yes (Congenital Anomaly)
  Sender: FDA-Public Use
  Company Number: GB-ROCHE-3459422

PATIENT
  Age: 80 Year
  Sex: Male

DRUGS (1)
  1. VABYSMO [Suspect]
     Active Substance: FARICIMAB\FARICIMAB-SVOA
     Indication: Neovascular age-related macular degeneration
     Route: 031
     Dates: start: 20230105

REACTIONS (1)
  - Retinal pigment epithelial tear [Unknown]

NARRATIVE: CASE EVENT DATE: 20230105
